FAERS Safety Report 13271550 (Version 2)
Quarter: 2018Q3

REPORT INFORMATION
  Report Type: Spontaneous
  Country: GB (occurrence: GB)
  Receive Date: 20170227
  Receipt Date: 20180806
  Transmission Date: 20181010
  Serious: Yes (Other)
  Sender: FDA-Public Use
  Company Number: GB-ROCHE-1898631

PATIENT
  Age: 50 Year
  Sex: Male

DRUGS (4)
  1. RAMIPRIL. [Concomitant]
     Active Substance: RAMIPRIL
     Indication: HYPERTENSION
  2. AMITRIPTYLINE [Concomitant]
     Active Substance: AMITRIPTYLINE
     Indication: DEPRESSION
  3. HEPARIN, LOW MOLECULAR WEIGHT [Concomitant]
  4. ACTILYSE [Suspect]
     Active Substance: ALTEPLASE
     Indication: PELVIC VENOUS THROMBOSIS
     Dosage: 1) DAILY DOSE: 0.5 MG/ML IN 10 ML SALINE OVER 1 MINUTE WITH ANOTHER 5 MG GIVEN AND 0.5 MG/ML IN 10 M
     Route: 065

REACTIONS (1)
  - Systemic inflammatory response syndrome [Recovered/Resolved]
